FAERS Safety Report 19648087 (Version 2)
Quarter: 2021Q3

REPORT INFORMATION
  Report Type: Spontaneous
  Country: US (occurrence: US)
  Receive Date: 20210803
  Receipt Date: 20210810
  Transmission Date: 20211014
  Serious: No
  Sender: FDA-Public Use
  Company Number: US-AMGEN-USASP2021116520

PATIENT
  Sex: Female

DRUGS (2)
  1. CEFDINIR. [Concomitant]
     Active Substance: CEFDINIR
  2. PROLIA [Suspect]
     Active Substance: DENOSUMAB
     Indication: PRODUCT USED FOR UNKNOWN INDICATION
     Dosage: UNK
     Route: 065

REACTIONS (2)
  - Antibiotic therapy [Unknown]
  - Pain [Recovered/Resolved]
